FAERS Safety Report 9999374 (Version 1)
Quarter: 2014Q1

REPORT INFORMATION
  Report Type: Spontaneous
  Country: US (occurrence: US)
  Receive Date: 20140312
  Receipt Date: 20140312
  Transmission Date: 20141002
  Serious: Yes (Other)
  Sender: FDA-Public Use
  Company Number: US-ASTRAZENECA-2014SE15890

PATIENT
  Age: 61 Year
  Sex: Female
  Weight: 86.2 kg

DRUGS (4)
  1. TOPROL XL [Suspect]
     Route: 048
  2. TOPROL XL [Suspect]
     Route: 048
  3. CRESTOR [Suspect]
     Route: 048
  4. BABY ASPIRIN [Concomitant]

REACTIONS (5)
  - Aneurysm [Unknown]
  - Hypertension [Unknown]
  - Blood cholesterol increased [Unknown]
  - Palpitations [Unknown]
  - Drug hypersensitivity [Unknown]
